FAERS Safety Report 14164561 (Version 3)
Quarter: 2018Q2

REPORT INFORMATION
  Report Type: Spontaneous
  Country: JP (occurrence: JP)
  Receive Date: 20171107
  Receipt Date: 20180406
  Transmission Date: 20180711
  Serious: Yes (Hospitalization, Other)
  Sender: FDA-Public Use
  Company Number: JP-UCBSA-2017043914

PATIENT
  Age: 42 Year
  Sex: Male

DRUGS (9)
  1. E KEPPRA [Suspect]
     Active Substance: LEVETIRACETAM
     Dosage: DAILY DOSE:3000 MG
     Route: 048
     Dates: start: 20171019, end: 20171023
  2. E KEPPRA [Suspect]
     Active Substance: LEVETIRACETAM
     Indication: EPILEPSY
     Dosage: DAILY DOSE:1000 MG
     Route: 048
     Dates: start: 20150909, end: 20160204
  3. E KEPPRA [Suspect]
     Active Substance: LEVETIRACETAM
     Dosage: DAILY DOSE:3000 MG
     Route: 048
     Dates: start: 20160514
  4. TEGRETOL [Suspect]
     Active Substance: CARBAMAZEPINE
     Dosage: 200 MG DAILY
     Route: 048
     Dates: start: 20171019, end: 20171023
  5. TEGRETOL [Suspect]
     Active Substance: CARBAMAZEPINE
     Indication: EPILEPSY
     Dosage: 200 MG DAILY
     Route: 048
     Dates: start: 20160514
  6. MIDAZOLAM [Concomitant]
     Active Substance: MIDAZOLAM HYDROCHLORIDE
     Indication: SEIZURE
  7. E KEPPRA [Suspect]
     Active Substance: LEVETIRACETAM
     Dosage: DAILY DOSE:2000 MG
     Route: 048
     Dates: start: 20160205, end: 20160513
  8. FYCOMPA [Suspect]
     Active Substance: PERAMPANEL
     Indication: EPILEPSY
     Dosage: DAILY DOSE: 2 MG
     Route: 048
     Dates: start: 20171019, end: 20171023
  9. DIAZEPAM. [Concomitant]
     Active Substance: DIAZEPAM
     Indication: SEIZURE

REACTIONS (3)
  - Acute kidney injury [Recovered/Resolved]
  - Epilepsy [Unknown]
  - Rhabdomyolysis [Recovered/Resolved]

NARRATIVE: CASE EVENT DATE: 2016
